FAERS Safety Report 5115423-5 (Version None)
Quarter: 2006Q3

REPORT INFORMATION
  Report Type: 
  Country: None (occurrence: None)
  Receive Date: 20060921
  Receipt Date: 20060914
  Transmission Date: 20061208
  Serious: Yes (Other)
  Sender: FDA-Public Use
  Company Number: HQWYE828418SEP06

PATIENT
  Age: 55 Year
  Sex: Male

DRUGS (2)
  1. RAPAMUNE [Suspect]
     Indication: IMMUNOSUPPRESSANT DRUG THERAPY
     Dosage: 2 MG 1X PER 1 DAY, ORAL
     Route: 048
  2. MYCOPHENOLIC ACID [Concomitant]

REACTIONS (1)
  - BLADDER CANCER [None]
